FAERS Safety Report 7139386-6 (Version None)
Quarter: 2010Q4

REPORT INFORMATION
  Report Type: 
  Country: None (occurrence: None)
  Receive Date: 20101206
  Receipt Date: 20101123
  Transmission Date: 20110411
  Serious: Yes (Death, Other)
  Sender: FDA-Public Use
  Company Number: CA-WATSON-2010-15332

PATIENT
  Age: 8 Month
  Sex: Female

DRUGS (9)
  1. ISONIAZID [Suspect]
     Indication: TUBERCULOSIS
     Dosage: 20 MG/KG, DAILY
  2. SULFAMETHOXAZOLE AND TRIMETHOPRIM [Suspect]
     Indication: PROPHYLAXIS AGAINST HIV INFECTION
     Dosage: UNK
  3. RIFAMPICIN [Suspect]
     Indication: TUBERCULOSIS
     Dosage: 20 MG/KG, DAILY
  4. PYRAZINAMIDE [Suspect]
     Indication: TUBERCULOSIS
     Dosage: 40 MG/KG, DAILY
  5. ETHAMBUTOL HYDROCHLORIDE [Suspect]
     Indication: TUBERCULOSIS
     Dosage: 20 MG/KG, DAILY
  6. BCG                                /00002001/ [Suspect]
     Indication: IMMUNISATION
     Dosage: UNK
  7. ZIDOVUDINE [Suspect]
     Indication: HIV INFECTION
     Dosage: UNK
  8. LAMIVUDINE [Suspect]
     Indication: HIV INFECTION
     Dosage: UNK
  9. LOPINAVIR/RITONAVIR [Suspect]
     Indication: HIV INFECTION
     Dosage: UNK

REACTIONS (4)
  - ACUTE HEPATIC FAILURE [None]
  - HEPATIC ENCEPHALOPATHY [None]
  - HEPATITIS B [None]
  - IMMUNE RECONSTITUTION SYNDROME [None]
